FAERS Safety Report 8974785 (Version 1)
Quarter: 2012Q4

REPORT INFORMATION
  Report Type: 
  Country: US (occurrence: US)
  Receive Date: 20121220
  Receipt Date: 20121220
  Transmission Date: 20130627
  Serious: Yes (Other)
  Sender: FDA-Public Use
  Company Number: US-PURDUE-GBR-2012-0012391

PATIENT
  Age: 55 Year
  Sex: Female

DRUGS (6)
  1. MORPHINE SULFATE [Suspect]
     Indication: BREAKTHROUGH PAIN
     Dosage: 40 mg, UNK
     Route: 042
  2. FENTANYL [Concomitant]
     Indication: ANALGESIC THERAPY
     Dosage: 75 mcg, q1h
  3. ROPIVACAINE [Concomitant]
     Indication: ANALGESIC THERAPY
  4. KETAMINE [Concomitant]
     Indication: ANALGESIC THERAPY
  5. METHADONE [Concomitant]
     Dosage: 10 mg, bid
     Route: 048
  6. HALOPERIDOL [Concomitant]

REACTIONS (2)
  - Delirium [Recovered/Resolved]
  - Confusional state [Recovered/Resolved]
